FAERS Safety Report 9484635 (Version 1)
Quarter: 2013Q3

REPORT INFORMATION
  Report Type: Spontaneous
  Country: US (occurrence: US)
  Receive Date: 20130828
  Receipt Date: 20130828
  Transmission Date: 20140515
  Serious: Yes (Hospitalization, Other)
  Sender: FDA-Public Use
  Company Number: US-GLAXOSMITHKLINE-A1039326A

PATIENT
  Age: 71 Year
  Sex: 0

DRUGS (2)
  1. BENLYSTA [Suspect]
     Indication: SYSTEMIC LUPUS ERYTHEMATOSUS
     Dosage: 10MGK MONTHLY
     Route: 042
     Dates: start: 201209
  2. NO CONCURRENT MEDICATION [Concomitant]

REACTIONS (4)
  - Abdominal pain [Recovered/Resolved]
  - Gastrointestinal obstruction [Recovered/Resolved]
  - Sepsis [Recovered/Resolved]
  - Surgery [Recovered/Resolved]
